FAERS Safety Report 7642044-2 (Version None)
Quarter: 2011Q3

REPORT INFORMATION
  Report Type: 
  Country: None (occurrence: None)
  Receive Date: 20110727
  Receipt Date: 20110727
  Transmission Date: 20111222
  Serious: Yes (Other)
  Sender: FDA-Public Use
  Company Number: None

PATIENT
  Sex: Female
  Weight: 81.6475 kg

DRUGS (3)
  1. BACLOFEN [Suspect]
     Indication: SPONDYLOLISTHESIS
     Dosage: 10MG 2 TABS BID ORAL - 047
     Route: 048
     Dates: start: 20070101
  2. BACLOFEN [Suspect]
     Indication: SCIATICA
     Dosage: 10MG 2 TABS BID ORAL - 047
     Route: 048
     Dates: start: 20070101
  3. TOPROL-XL [Suspect]
     Indication: HYPERTENSION
     Dosage: 100MG 1 TAB BID ORAL - 047
     Route: 048
     Dates: start: 20070101

REACTIONS (2)
  - PRODUCT SUBSTITUTION ISSUE [None]
  - DRUG INTOLERANCE [None]
